FAERS Safety Report 8882491 (Version 1)
Quarter: 2012Q4

REPORT INFORMATION
  Report Type: 
  Country: US (occurrence: US)
  Receive Date: 20121102
  Receipt Date: 20121102
  Transmission Date: 20130627
  Serious: No
  Sender: FDA-Public Use
  Company Number: US-TEVA-328837USA

PATIENT
  Sex: Female

DRUGS (1)
  1. TRISENOX [Suspect]
     Route: 042

REACTIONS (1)
  - Chest pain [Unknown]
